FAERS Safety Report 18245776 (Version 2)
Quarter: 2020Q4

REPORT INFORMATION
  Report Type: Spontaneous
  Country: US (occurrence: US)
  Receive Date: 20200909
  Receipt Date: 20201029
  Transmission Date: 20210113
  Serious: No
  Sender: FDA-Public Use
  Company Number: US-ASTRAZENECA-2020SF12315

PATIENT
  Age: 877 Month
  Sex: Male
  Weight: 77.1 kg

DRUGS (1)
  1. BUDESONIDE AND FORMOTEROL [Suspect]
     Active Substance: BUDESONIDE\FORMOTEROL
     Dosage: 160/4.5 MCG, TWO TIMES A DAY
     Route: 055
     Dates: start: 20200820

REACTIONS (4)
  - Wrong technique in device usage process [Unknown]
  - Intentional device misuse [Unknown]
  - Coating in mouth [Unknown]
  - Device malfunction [Unknown]

NARRATIVE: CASE EVENT DATE: 202008
